FAERS Safety Report 14959193 (Version 1)
Quarter: 2018Q2

REPORT INFORMATION
  Report Type: Spontaneous
  Country: DE (occurrence: DE)
  Receive Date: 20180531
  Receipt Date: 20180531
  Transmission Date: 20180711
  Serious: Yes (Congenital Anomaly, Other)
  Sender: FDA-Public Use
  Company Number: DE-MYLANLABS-2018M1034900

PATIENT
  Age: 1 Day
  Sex: Male
  Weight: 1.06 kg

DRUGS (1)
  1. CANDESARTAN. [Suspect]
     Active Substance: CANDESARTAN
     Indication: ESSENTIAL HYPERTENSION
     Dosage: ADDITIONAL INFO: 0. - 24. GESTATIONAL WEEK
     Route: 064

REACTIONS (7)
  - Hypospadias [Not Recovered/Not Resolved]
  - Dysmorphism [Not Recovered/Not Resolved]
  - Pulmonary hypoplasia [Not Recovered/Not Resolved]
  - Endocardial fibrosis [Not Recovered/Not Resolved]
  - Foetal exposure during pregnancy [Recovered/Resolved]
  - Cardiac hypertrophy [Not Recovered/Not Resolved]
  - Renal failure [Not Recovered/Not Resolved]
